FAERS Safety Report 4283955-8 (Version None)
Quarter: 2004Q1

REPORT INFORMATION
  Report Type: 
  Country: None (occurrence: None)
  Receive Date: 20040202
  Receipt Date: 20030130
  Transmission Date: 20041129
  Serious: Yes (Hospitalization, Disabling)
  Sender: FDA-Public Use
  Company Number: WAES 0302USA00101

PATIENT
  Age: 48 Year
  Sex: Male
  Weight: 166 kg

DRUGS (8)
  1. [THERAPY UNSPECIFIED] [Concomitant]
     Indication: BLOOD PRESSURE
  2. TYLENOL [Concomitant]
     Dates: start: 20010101
  3. LASIX [Concomitant]
  4. GLYBURIDE [Concomitant]
  5. GLUCOPHAGE [Concomitant]
  6. ACCUPRIL [Concomitant]
  7. VIOXX [Suspect]
     Indication: OSTEOARTHRITIS
     Route: 048
     Dates: start: 20010101
  8. ZOCOR [Suspect]
     Route: 048

REACTIONS (34)
  - ACIDOSIS [None]
  - ARTHRITIS [None]
  - ASTHENIA [None]
  - BLOOD CHOLESTEROL INCREASED [None]
  - BLOOD CREATINE PHOSPHOKINASE INCREASED [None]
  - BLOOD MAGNESIUM INCREASED [None]
  - BREATH SOUNDS DECREASED [None]
  - CARDIOMEGALY [None]
  - DEPRESSED LEVEL OF CONSCIOUSNESS [None]
  - DIABETES MELLITUS [None]
  - DIALYSIS [None]
  - DUODENAL ULCER [None]
  - DYSPNOEA [None]
  - ELECTROCARDIOGRAM QT PROLONGED [None]
  - EMOTIONAL DISTRESS [None]
  - FATIGUE [None]
  - FLUID RETENTION [None]
  - HYPOCALCAEMIA [None]
  - HYPOTENSION [None]
  - HYPOTONIA [None]
  - INJURY [None]
  - MENTAL IMPAIRMENT [None]
  - MONARTHRITIS [None]
  - MUSCLE CRAMP [None]
  - MYOCARDIAL INFARCTION [None]
  - OEDEMA PERIPHERAL [None]
  - PAIN [None]
  - RENAL FAILURE [None]
  - RENAL FAILURE ACUTE [None]
  - RENAL TUBULAR NECROSIS [None]
  - RHABDOMYOLYSIS [None]
  - STUPOR [None]
  - SWELLING [None]
  - WHITE BLOOD CELL COUNT INCREASED [None]
